FAERS Safety Report 23546291 (Version 2)
Quarter: 2024Q2

REPORT INFORMATION
  Report Type: Spontaneous
  Country: US (occurrence: US)
  Receive Date: 20240220
  Receipt Date: 20240414
  Transmission Date: 20240716
  Serious: No
  Sender: FDA-Public Use
  Company Number: US-BIOGEN-2023BI01241264

PATIENT
  Age: 32 Year
  Sex: Male
  Weight: 62.257 kg

DRUGS (3)
  1. SKYCLARYS [Suspect]
     Active Substance: OMAVELOXOLONE
     Indication: Friedreich^s ataxia
     Dosage: 150 MILLIGRAM, QD
     Route: 050
     Dates: start: 20230729
  2. SKYCLARYS [Suspect]
     Active Substance: OMAVELOXOLONE
     Dosage: 150 MILLIGRAM, QD
     Route: 050
     Dates: start: 20230729
  3. SKYCLARYS [Suspect]
     Active Substance: OMAVELOXOLONE
     Dosage: 150MG BY MOUTH ONCE DAILY
     Route: 050
     Dates: start: 20230729

REACTIONS (5)
  - Dysphagia [Unknown]
  - COVID-19 [Unknown]
  - Product use complaint [Unknown]
  - Wrong technique in product usage process [Unknown]
  - Furuncle [Unknown]

NARRATIVE: CASE EVENT DATE: 20231001
